FAERS Safety Report 18675785 (Version 1)
Quarter: 2020Q4

REPORT INFORMATION
  Report Type: Spontaneous
  Country: FR (occurrence: FR)
  Receive Date: 20201229
  Receipt Date: 20201229
  Transmission Date: 20210114
  Serious: Yes (Death)
  Sender: FDA-Public Use
  Company Number: FR-JNJFOC-20201251894

PATIENT
  Age: 94 Year
  Sex: Female
  Weight: 53 kg

DRUGS (2)
  1. TRAMADOL HYDROCHLORIDE. [Suspect]
     Active Substance: TRAMADOL HYDROCHLORIDE
     Indication: PAIN
     Dosage: 100 MILLIGRAM, 1/DAY
     Route: 048
     Dates: start: 20201027, end: 20201204
  2. RISPERIDONE. [Interacting]
     Active Substance: RISPERIDONE
     Indication: DEMENTIA ALZHEIMER^S TYPE
     Dosage: 2 MILLIGRAM, 1/DAY
     Route: 048

REACTIONS (2)
  - Drug interaction [Fatal]
  - Death [Fatal]
